FAERS Safety Report 21882829 (Version 1)
Quarter: 2023Q1

REPORT INFORMATION
  Report Type: Spontaneous
  Country: NP (occurrence: NP)
  Receive Date: 20230119
  Receipt Date: 20230119
  Transmission Date: 20230418
  Serious: Yes (Hospitalization)
  Sender: FDA-Public Use
  Company Number: NP-IPCA LABORATORIES LIMITED-IPC-2023-NP-000076

PATIENT

DRUGS (2)
  1. WARFARIN [Suspect]
     Active Substance: WARFARIN
     Indication: Rheumatic heart disease
     Dosage: 10 MILLIGRAM, QD
     Route: 065
  2. WARFARIN [Suspect]
     Active Substance: WARFARIN
     Dosage: 5 MILLIGRAM
     Route: 065

REACTIONS (2)
  - Spontaneous haematoma [Recovering/Resolving]
  - Anticoagulation drug level above therapeutic [Recovering/Resolving]
